FAERS Safety Report 5974191-5 (Version None)
Quarter: 2008Q4

REPORT INFORMATION
  Report Type: 
  Country: None (occurrence: None)
  Receive Date: 20081201
  Receipt Date: 20081119
  Transmission Date: 20090506
  Serious: Yes (Hospitalization)
  Sender: FDA-Public Use
  Company Number: FR-PFIZER INC-2005135728

PATIENT
  Sex: Female
  Weight: 59 kg

DRUGS (6)
  1. SU-011,248 [Suspect]
     Indication: RENAL CANCER METASTATIC
     Route: 048
     Dates: start: 20050704, end: 20070730
  2. METOPROLOL TARTRATE [Concomitant]
     Route: 048
     Dates: start: 19880101
  3. AMLODIPINE [Concomitant]
     Route: 048
     Dates: start: 19880101
  4. BENAZEPRIL HYDROCHLORIDE [Concomitant]
     Route: 048
     Dates: start: 19880101
  5. ALLOPURINOL [Concomitant]
     Route: 048
  6. GEMFIBROZIL [Concomitant]
     Route: 048
     Dates: start: 19980101

REACTIONS (2)
  - CHOLECYSTITIS ACUTE [None]
  - GASTRIC ULCER HAEMORRHAGE [None]
